FAERS Safety Report 6945251-7 (Version None)
Quarter: 2010Q3

REPORT INFORMATION
  Report Type: 
  Country: None (occurrence: None)
  Receive Date: 20100827
  Receipt Date: 20100720
  Transmission Date: 20110219
  Serious: No
  Sender: FDA-Public Use
  Company Number: US-KINGPHARMUSA00001-K201000910

PATIENT
  Sex: Female
  Weight: 72.562 kg

DRUGS (12)
  1. FLECTOR [Suspect]
     Indication: ARTHRALGIA
     Dosage: 1 PATCH, ONE-HALF TO EACH FOOT, BID
     Route: 061
     Dates: start: 20100601, end: 20100701
  2. FLECTOR [Suspect]
     Indication: RHEUMATOID ARTHRITIS
     Dosage: 1 PATCH, QD FOR 12H
     Route: 061
     Dates: start: 20100701, end: 20100718
  3. FLECTOR [Suspect]
     Indication: INFLAMMATION
  4. FOLIC ACID [Concomitant]
     Indication: PROPHYLAXIS
     Dosage: UNK
     Route: 048
  5. ORENCIA [Concomitant]
     Indication: RHEUMATOID ARTHRITIS
     Dosage: UNK, Q MONTH
     Route: 042
  6. MINOCYCLINE HCL [Concomitant]
     Dosage: 200 MG, BID
     Route: 048
  7. CITALOPRAM [Concomitant]
     Indication: DEPRESSION
     Dosage: 40 MG, QD
     Route: 048
  8. MULTI-VITAMIN [Concomitant]
     Indication: SUPPLEMENTATION THERAPY
     Dosage: 1 DF, QD
     Route: 048
  9. CALCIUM CARBONATE [Concomitant]
     Indication: SUPPLEMENTATION THERAPY
     Dosage: 1 DF, QD
     Route: 048
  10. MAGNESIUM [Concomitant]
     Indication: SUPPLEMENTATION THERAPY
     Dosage: 1 DF, QD
     Route: 048
  11. ZINC [Concomitant]
     Indication: SUPPLEMENTATION THERAPY
     Dosage: 1 DF, QD
     Route: 048
  12. METHOTREXATE [Concomitant]

REACTIONS (3)
  - JOINT LOCK [None]
  - OEDEMA PERIPHERAL [None]
  - PAIN [None]
